FAERS Safety Report 5834954-3 (Version None)
Quarter: 2008Q3

REPORT INFORMATION
  Report Type: 
  Country: None (occurrence: None)
  Receive Date: 20080806
  Receipt Date: 20080728
  Transmission Date: 20090109
  Serious: Yes (Other)
  Sender: FDA-Public Use
  Company Number: JP-JNJFOC-20080505475

PATIENT
  Sex: Female
  Weight: 36 kg

DRUGS (13)
  1. ITRIZOLE [Suspect]
     Route: 048
  2. ITRIZOLE [Suspect]
     Indication: ORAL CANDIDIASIS
     Route: 048
  3. ZOBISTAT [Concomitant]
     Indication: HERPES SIMPLEX
     Route: 050
  4. FUNGIZONE [Concomitant]
     Indication: ORAL CANDIDIASIS
     Route: 049
  5. TERRA-CORTRIL [Concomitant]
     Indication: HERPES SIMPLEX
     Route: 049
  6. ISODINE GARGLE [Concomitant]
     Indication: ORAL CANDIDIASIS
     Route: 049
  7. VANCOMYCIN HYDROCHLORIDE [Concomitant]
     Indication: PSEUDOMEMBRANOUS COLITIS
     Route: 050
  8. AMARYL [Concomitant]
     Indication: DIABETES MELLITUS
     Route: 048
  9. VOGLIBOSE OD [Concomitant]
     Indication: DIABETES MELLITUS
     Route: 048
  10. MEROPEN [Concomitant]
     Indication: PNEUMONIA
     Route: 041
  11. EXACIN [Concomitant]
     Indication: PNEUMONIA
     Route: 041
  12. TANATRIL [Concomitant]
     Indication: PROPHYLAXIS
     Route: 050
  13. MAGLAX [Concomitant]
     Indication: CONSTIPATION
     Route: 048

REACTIONS (1)
  - PSEUDOMEMBRANOUS COLITIS [None]
